FAERS Safety Report 5578053-7 (Version None)
Quarter: 2007Q4

REPORT INFORMATION
  Report Type: 
  Country: None (occurrence: None)
  Receive Date: 20071227
  Receipt Date: 20071210
  Transmission Date: 20080405
  Serious: Yes (Hospitalization)
  Sender: FDA-Public Use
  Company Number: 2007AP000977

PATIENT
  Age: 52 Year
  Sex: Male

DRUGS (4)
  1. ZOPLICONE (ZOPLICONE) [Suspect]
     Dosage: 37.5 MG; 1X; PO
     Route: 048
  2. ATENOLOL [Suspect]
     Dosage: 2000 MG; PO;  1X
     Route: 048
  3. LOSARTAN POTASSIUM [Suspect]
     Dosage: 2000 MG; PO; 1X; PO
     Route: 048
  4. AMLODIPINE BESYLATE [Suspect]
     Dosage: 325 MG; PO; 1X
     Route: 048

REACTIONS (4)
  - ATRIOVENTRICULAR BLOCK FIRST DEGREE [None]
  - BLOOD GLUCOSE INCREASED [None]
  - HYPOTENSION [None]
  - MULTIPLE DRUG OVERDOSE [None]
